FAERS Safety Report 9783203 (Version 1)
Quarter: 2013Q4

REPORT INFORMATION
  Report Type: Spontaneous
  Country: US (occurrence: None)
  Receive Date: 20131223
  Receipt Date: 20131223
  Transmission Date: 20140711
  Serious: No
  Sender: FDA-Public Use
  Company Number: EUS-2012-00205

PATIENT
  Sex: Male

DRUGS (1)
  1. ERWINASE (ASPARAGINASE) [Suspect]
     Indication: ACUTE LYMPHOCYTIC LEUKAEMIA
     Dosage: X6 DOSES SPACED EVERY 2 DAYS
     Route: 030
     Dates: start: 20080729

REACTIONS (2)
  - Hypersensitivity [None]
  - Abdominal pain [None]
